FAERS Safety Report 7338081-8 (Version None)
Quarter: 2011Q1

REPORT INFORMATION
  Report Type: 
  Country: None (occurrence: None)
  Receive Date: 20110308
  Receipt Date: 20110228
  Transmission Date: 20110831
  Serious: Yes (Hospitalization)
  Sender: FDA-Public Use
  Company Number: PHHY2010US48826

PATIENT
  Sex: Male

DRUGS (12)
  1. PANCREATIC ENZYMES [Concomitant]
     Dosage: QID
  2. MUCINEX [Concomitant]
  3. PRILOSEC [Concomitant]
     Dosage: QD
  4. OXYGEN [Concomitant]
  5. TOBI [Suspect]
     Indication: CYSTIC FIBROSIS
     Dosage: 300 MG, BID
  6. TOBI [Suspect]
     Indication: PSEUDOMONAS INFECTION
  7. AZTREONAM [Concomitant]
     Indication: CYSTIC FIBROSIS
  8. AZTREONAM [Concomitant]
     Indication: PSEUDOMONAS INFECTION
  9. AZITHROMYCIN [Concomitant]
     Indication: ANTIINFLAMMATORY THERAPY
     Dosage: TID
  10. ALBUTEROL [Concomitant]
     Dosage: QID
  11. ACTIGALL [Concomitant]
     Indication: LIVER DISORDER
     Dosage: 300 BID
  12. SPIRONOLACTONE [Concomitant]
     Dosage: 50 MG, QD

REACTIONS (9)
  - VARICES OESOPHAGEAL [None]
  - LIVER DISORDER [None]
  - FATIGUE [None]
  - CYSTIC FIBROSIS [None]
  - PORTAL HYPERTENSION [None]
  - LUNG DISORDER [None]
  - DISEASE PROGRESSION [None]
  - HEPATIC CIRRHOSIS [None]
  - PSEUDOMONAS INFECTION [None]
